FAERS Safety Report 20112297 (Version 1)
Quarter: 2021Q4

REPORT INFORMATION
  Report Type: Spontaneous
  Country: US (occurrence: US)
  Receive Date: 20211125
  Receipt Date: 20211125
  Transmission Date: 20220303
  Serious: Yes (Hospitalization)
  Sender: FDA-Public Use
  Company Number: US-DECIPHERA PHARMACEUTICALS LLC-2021US001055

PATIENT
  Sex: Male

DRUGS (1)
  1. QINLOCK [Suspect]
     Active Substance: RIPRETINIB
     Indication: Lung carcinoma cell type unspecified stage I
     Dosage: 150 MILLIGRAM, QD
     Route: 048
     Dates: start: 20211022

REACTIONS (3)
  - Blood potassium abnormal [Unknown]
  - Nausea [Recovering/Resolving]
  - Product use in unapproved indication [Unknown]
